FAERS Safety Report 8077676-3 (Version None)
Quarter: 2012Q1

REPORT INFORMATION
  Report Type: 
  Country: None (occurrence: None)
  Receive Date: 20120127
  Receipt Date: 20120126
  Transmission Date: 20120608
  Serious: Yes (Hospitalization)
  Sender: FDA-Public Use
  Company Number: ES-BAYER-2012-008145

PATIENT
  Age: 72 Year
  Sex: Female

DRUGS (1)
  1. ASPIRIN [Suspect]
     Dosage: 500 MG, TID
     Route: 048
     Dates: start: 20111221, end: 20111221

REACTIONS (6)
  - VOMITING [None]
  - SYNCOPE [None]
  - URTICARIA [None]
  - DIZZINESS [None]
  - HYPERHIDROSIS [None]
  - ANGIOEDEMA [None]
